FAERS Safety Report 13174845 (Version 3)
Quarter: 2020Q1

REPORT INFORMATION
  Report Type: Spontaneous
  Country: US (occurrence: US)
  Receive Date: 20170201
  Receipt Date: 20200206
  Transmission Date: 20200409
  Serious: No
  Sender: FDA-Public Use
  Company Number: US-ABBVIE-16K-163-1556456-00

PATIENT
  Sex: Female

DRUGS (1)
  1. HUMIRA [Suspect]
     Active Substance: ADALIMUMAB
     Indication: RHEUMATOID ARTHRITIS
     Route: 058

REACTIONS (16)
  - Fatigue [Unknown]
  - Depressed mood [Unknown]
  - Presyncope [Unknown]
  - Hepatic enzyme increased [Recovered/Resolved]
  - Asthenia [Unknown]
  - Loss of personal independence in daily activities [Unknown]
  - Liver disorder [Recovered/Resolved]
  - Renal function test abnormal [Recovering/Resolving]
  - Gluten sensitivity [Unknown]
  - Blood cholesterol increased [Recovered/Resolved]
  - Diabetes mellitus [Unknown]
  - Inflammatory marker decreased [Unknown]
  - Glycosylated haemoglobin increased [Recovering/Resolving]
  - Blood pressure decreased [Recovering/Resolving]
  - Hepatic steatosis [Unknown]
  - Arthralgia [Unknown]
